FAERS Safety Report 24167309 (Version 1)
Quarter: 2024Q3

REPORT INFORMATION
  Report Type: Spontaneous
  Country: US (occurrence: None)
  Receive Date: 20240801
  Receipt Date: 20240801
  Transmission Date: 20241016
  Serious: Yes (Other)
  Sender: Public
  Company Number: None

PATIENT
  Age: 46 Year
  Sex: Female
  Weight: 68.9 kg

DRUGS (1)
  1. PANHEMATIN [Suspect]
     Active Substance: HEMIN
     Dosage: OTHER FREQUENCY : ONCE;?
     Route: 042
     Dates: start: 20240715, end: 20240715

REACTIONS (4)
  - Infusion related reaction [None]
  - Infusion site pain [None]
  - Infusion site discomfort [None]
  - Medical device site pain [None]

NARRATIVE: CASE EVENT DATE: 20240715
